FAERS Safety Report 5409056-0 (Version None)
Quarter: 2007Q3

REPORT INFORMATION
  Report Type: 
  Country: None (occurrence: None)
  Receive Date: 20070806
  Receipt Date: 20070725
  Transmission Date: 20080115
  Serious: Yes (Other)
  Sender: FDA-Public Use
  Company Number: 100#02#2007-02845

PATIENT
  Age: 31 Year
  Sex: Female

DRUGS (9)
  1. SUMAMED (AZITHORMYCIN) (CAPSULES) [Suspect]
     Indication: UREAPLASMA INFECTION
     Dosage: 500 MG, 250 MG ORAL
     Route: 048
     Dates: start: 20070717, end: 20070718
  2. SUMAMED (AZITHORMYCIN) (CAPSULES) [Suspect]
     Indication: UROGENITAL INFECTION FUNGAL
     Dosage: 500 MG, 250 MG ORAL
     Route: 048
     Dates: start: 20070717, end: 20070718
  3. SUMAMED (AZITHORMYCIN) (CAPSULES) [Suspect]
     Indication: UREAPLASMA INFECTION
     Dosage: 500 MG, 250 MG ORAL
     Route: 048
     Dates: start: 20070719, end: 20070724
  4. SUMAMED (AZITHORMYCIN) (CAPSULES) [Suspect]
     Indication: UROGENITAL INFECTION FUNGAL
     Dosage: 500 MG, 250 MG ORAL
     Route: 048
     Dates: start: 20070719, end: 20070724
  5. GALAVIT INJECTION [Suspect]
     Indication: UREAPLASMA INFECTION
     Dosage: 0.1G INTRAMUSCULAR
     Route: 030
     Dates: start: 20070717, end: 20070720
  6. GALAVIT INJECTION [Suspect]
     Indication: UROGENITAL INFECTION FUNGAL
     Dosage: 0.1G INTRAMUSCULAR
     Route: 030
     Dates: start: 20070717, end: 20070720
  7. NIZORAL [Suspect]
     Indication: FUNGAL INFECTION
     Dosage: 200 MG ORAL
     Route: 048
     Dates: start: 20070716, end: 20070717
  8. NIZORAL [Suspect]
     Indication: PROPHYLAXIS
     Dosage: 200 MG ORAL
     Route: 048
     Dates: start: 20070716, end: 20070717
  9. UNIDOX (DOXYCYCLINE HYDROCHLORIDE) (TABLETS) (DOXYCYCLINE) [Concomitant]

REACTIONS (7)
  - ASTHENIA [None]
  - AUTONOMIC NERVOUS SYSTEM IMBALANCE [None]
  - BODY TEMPERATURE INCREASED [None]
  - GAIT DISTURBANCE [None]
  - HEADACHE [None]
  - HYPOAESTHESIA [None]
  - JOINT CREPITATION [None]
